FAERS Safety Report 6819340-1 (Version None)
Quarter: 2010Q3

REPORT INFORMATION
  Report Type: 
  Country: None (occurrence: None)
  Receive Date: 20100707
  Receipt Date: 20100706
  Transmission Date: 20110219
  Serious: Yes (Other)
  Sender: FDA-Public Use
  Company Number: US-ROXANE LABORATORIES, INC.-2010-RO-00790RO

PATIENT
  Age: 8 Year
  Sex: Male

DRUGS (1)
  1. FLUTICASONE [Suspect]
     Indication: ASTHMA
     Route: 055

REACTIONS (2)
  - ADRENAL INSUFFICIENCY [None]
  - GROWTH RETARDATION [None]
